FAERS Safety Report 4705298-8 (Version None)
Quarter: 2005Q3

REPORT INFORMATION
  Report Type: 
  Country: None (occurrence: None)
  Receive Date: 20050701
  Receipt Date: 20050620
  Transmission Date: 20060218
  Serious: Yes (Hospitalization)
  Sender: FDA-Public Use
  Company Number: FR-ROCHE-408404

PATIENT
  Age: 52 Year
  Sex: Male
  Weight: 69 kg

DRUGS (11)
  1. INVIRASE [Suspect]
     Route: 048
     Dates: start: 20050323, end: 20050329
  2. ZERIT [Suspect]
     Route: 048
     Dates: start: 20050323, end: 20050329
  3. ZYLORIC [Suspect]
     Route: 048
     Dates: start: 20050314, end: 20050329
  4. PIRILENE [Suspect]
     Indication: PULMONARY TUBERCULOSIS
     Route: 048
     Dates: start: 20050216, end: 20050329
  5. RIMIFON [Concomitant]
     Indication: PULMONARY TUBERCULOSIS
     Dosage: REPORTED AS RIMIFON LAPHAL.
     Route: 048
     Dates: start: 20050216, end: 20050329
  6. LASIX [Concomitant]
     Route: 048
  7. DETENSIEL [Concomitant]
  8. LASIX [Concomitant]
  9. KAYEXALATE [Concomitant]
  10. OMEPRAZOLE [Concomitant]
  11. UNSPECIFIED MEDICATION [Concomitant]
     Dosage: REPORTED AS AMIOR.

REACTIONS (2)
  - RENAL FAILURE ACUTE [None]
  - STEVENS-JOHNSON SYNDROME [None]
